FAERS Safety Report 18219641 (Version 3)
Quarter: 2020Q4

REPORT INFORMATION
  Report Type: Spontaneous
  Country: CH (occurrence: CH)
  Receive Date: 20200901
  Receipt Date: 20201006
  Transmission Date: 20210113
  Serious: No
  Sender: FDA-Public Use
  Company Number: CH-JNJFOC-20200819528

PATIENT
  Sex: Female

DRUGS (12)
  1. DUROGESIC MATRIX [Suspect]
     Active Substance: FENTANYL
  2. DUROGESIC MATRIX [Suspect]
     Active Substance: FENTANYL
  3. DUROGESIC MATRIX [Suspect]
     Active Substance: FENTANYL
     Indication: PAIN
     Route: 062
     Dates: start: 20200805, end: 20200810
  4. DUROGESIC MATRIX [Suspect]
     Active Substance: FENTANYL
  5. DUROGESIC MATRIX [Suspect]
     Active Substance: FENTANYL
     Indication: PAIN
     Route: 062
     Dates: start: 20200805, end: 20200810
  6. DUROGESIC MATRIX [Suspect]
     Active Substance: FENTANYL
  7. DUROGESIC MATRIX [Suspect]
     Active Substance: FENTANYL
  8. DUROGESIC MATRIX [Suspect]
     Active Substance: FENTANYL
  9. DUROGESIC MATRIX [Suspect]
     Active Substance: FENTANYL
  10. DUROGESIC MATRIX [Suspect]
     Active Substance: FENTANYL
  11. DUROGESIC MATRIX [Suspect]
     Active Substance: FENTANYL
  12. DUROGESIC MATRIX [Suspect]
     Active Substance: FENTANYL

REACTIONS (4)
  - Product adhesion issue [Unknown]
  - Wrong technique in product usage process [Unknown]
  - Hyperhidrosis [Unknown]
  - Pain [Unknown]
